FAERS Safety Report 7319383-8 (Version None)
Quarter: 2011Q1

REPORT INFORMATION
  Report Type: 
  Country: None (occurrence: None)
  Receive Date: 20110228
  Receipt Date: 20100301
  Transmission Date: 20110831
  Serious: No
  Sender: FDA-Public Use
  Company Number: A0847346A

PATIENT
  Age: 23 Year
  Sex: Female

DRUGS (6)
  1. REQUIP [Concomitant]
  2. TRILEPTAL [Concomitant]
  3. ETODOLAC [Suspect]
     Dates: start: 20100221
  4. YAZ [Concomitant]
  5. LAMICTAL [Suspect]
     Indication: BIPOLAR DISORDER
     Dosage: 25MG TWICE PER DAY
     Route: 048
     Dates: start: 20090201
  6. CEFUROXIME [Suspect]
     Dates: start: 20100222

REACTIONS (3)
  - RASH [None]
  - PYREXIA [None]
  - WEIGHT INCREASED [None]
